FAERS Safety Report 18448910 (Version 3)
Quarter: 2020Q4

REPORT INFORMATION
  Report Type: Spontaneous
  Country: US (occurrence: US)
  Receive Date: 20201030
  Receipt Date: 20201112
  Transmission Date: 20210114
  Serious: No
  Sender: FDA-Public Use
  Company Number: US-PFIZER INC-2020377024

PATIENT
  Age: 64 Year
  Sex: Female
  Weight: 58.51 kg

DRUGS (2)
  1. PREMARIN [Suspect]
     Active Substance: ESTROGENS, CONJUGATED
     Dosage: 1 G, 2X/WEEK (1 GM VAGINALLY 2X WK)
     Route: 067
  2. PREMARIN [Suspect]
     Active Substance: ESTROGENS, CONJUGATED
     Indication: HORMONE REPLACEMENT THERAPY
     Dosage: 1 G, 1X/DAY (1GM PER VAGINA AT HS (AT NIGHT))
     Route: 067
     Dates: end: 202008

REACTIONS (8)
  - Vulvovaginal mycotic infection [Unknown]
  - Skin atrophy [Unknown]
  - Vulvovaginal pruritus [Unknown]
  - Off label use [Unknown]
  - Product use issue [Unknown]
  - Vulvovaginal discomfort [Unknown]
  - Drug withdrawal syndrome [Unknown]
  - Product prescribing error [Unknown]
